FAERS Safety Report 8759824 (Version 1)
Quarter: 2012Q4

REPORT INFORMATION
  Report Type: 
  Country: FR (occurrence: FR)
  Receive Date: 20120912
  Receipt Date: 20120912
  Transmission Date: 20130627
  Serious: Yes (Hospitalization)
  Sender: FDA-Public Use
  Company Number: FR-ASTRAZENECA-2012SE61349

PATIENT
  Age: 22769 Day
  Sex: Male

DRUGS (4)
  1. INEXIUM [Suspect]
     Indication: ANTIINFLAMMATORY THERAPY
     Route: 048
     Dates: start: 20110923, end: 20110923
  2. APRANAX [Interacting]
     Indication: ARTHRALGIA
     Route: 048
     Dates: start: 20110923, end: 20110923
  3. DEPAKINE [Interacting]
     Indication: IDIOPATHIC GENERALISED EPILEPSY
     Route: 048
     Dates: start: 2009, end: 201101
  4. DEPAKINE [Interacting]
     Indication: IDIOPATHIC GENERALISED EPILEPSY
     Route: 048
     Dates: start: 201101

REACTIONS (2)
  - Drug interaction [Recovered/Resolved]
  - Status epilepticus [Recovered/Resolved]
